FAERS Safety Report 21966824 (Version 1)
Quarter: 2023Q1

REPORT INFORMATION
  Report Type: Other
  Country: US (occurrence: US)
  Receive Date: 20230208
  Receipt Date: 20230208
  Transmission Date: 20230418
  Serious: Yes (Hospitalization)
  Sender: FDA-Public Use
  Company Number: US-TRAVERE-2022TVT00368

PATIENT
  Age: 3 Year
  Sex: Female

DRUGS (1)
  1. CHOLBAM [Suspect]
     Active Substance: CHOLIC ACID
     Indication: Cerebrohepatorenal syndrome
     Dosage: DOSE:  150 MG / AS DIRECTED (2 CAPS IN AM AND 1 CAP IN PM)
     Route: 048
     Dates: start: 20220227

REACTIONS (6)
  - Rhinovirus infection [Unknown]
  - Viral infection [Unknown]
  - Extra dose administered [Unknown]
  - Pyrexia [Unknown]
  - Lung disorder [Unknown]
  - Restlessness [Unknown]

NARRATIVE: CASE EVENT DATE: 20220101
